FAERS Safety Report 14774642 (Version 1)
Quarter: 2018Q2

REPORT INFORMATION
  Report Type: Spontaneous
  Country: US (occurrence: US)
  Receive Date: 20180418
  Receipt Date: 20180418
  Transmission Date: 20180711
  Serious: Yes (Other)
  Sender: FDA-Public Use
  Company Number: US-ASTELLAS-2017US026768

PATIENT
  Age: 77 Year
  Sex: Female
  Weight: 43 kg

DRUGS (2)
  1. LEXISCAN [Suspect]
     Active Substance: REGADENOSON
     Indication: SCAN MYOCARDIAL PERFUSION
     Dosage: UNK UNK, OTHER (ONCE) FOR 15 SECONDS
     Route: 042
     Dates: start: 20170705, end: 20170705
  2. LEXISCAN [Suspect]
     Active Substance: REGADENOSON
     Dosage: UNK UNK, OTHER (ONCE)
     Route: 042
     Dates: start: 20170705, end: 20170705

REACTIONS (6)
  - Incorrect drug administration duration [Unknown]
  - Injection site extravasation [Recovered/Resolved]
  - Chest pain [Recovered/Resolved]
  - Vomiting [Recovered/Resolved]
  - Anal incontinence [Recovered/Resolved]
  - Tachycardia [Recovered/Resolved]

NARRATIVE: CASE EVENT DATE: 20170705
